FAERS Safety Report 6939755-0 (Version None)
Quarter: 2010Q3

REPORT INFORMATION
  Report Type: 
  Country: None (occurrence: None)
  Receive Date: 20100825
  Receipt Date: 20100817
  Transmission Date: 20110219
  Serious: No
  Sender: FDA-Public Use
  Company Number: US-BIOGENIDEC-2010BI028708

PATIENT
  Age: 49 Year
  Sex: Male

DRUGS (2)
  1. TYSABRI [Suspect]
     Indication: MULTIPLE SCLEROSIS
     Route: 042
     Dates: start: 20080911, end: 20100801
  2. TYSABRI [Suspect]
     Route: 042
     Dates: start: 20100801

REACTIONS (2)
  - ARRHYTHMIA [None]
  - BLOOD TEST ABNORMAL [None]
